FAERS Safety Report 5276541-4 (Version None)
Quarter: 2007Q1

REPORT INFORMATION
  Report Type: 
  Country: None (occurrence: None)
  Receive Date: 20061213
  Receipt Date: 20040121
  Transmission Date: 20070707
  Serious: Yes (Hospitalization)
  Sender: FDA-Public Use
  Company Number: 2004UW01175

PATIENT
  Age: 50 Year
  Sex: Male

DRUGS (4)
  1. SEROQUEL [Suspect]
     Indication: MENTAL RETARDATION SEVERITY UNSPECIFIED
     Dosage: 250 MG DAILY PO
     Route: 048
     Dates: start: 20031201, end: 20040101
  2. SEROQUEL [Suspect]
     Indication: SCHIZOPHRENIA, UNDIFFERENTIATED TYPE
     Dosage: 250 MG DAILY PO
     Route: 048
     Dates: start: 20031201, end: 20040101
  3. CLOZARIL [Concomitant]
  4. LEXAPRO [Concomitant]

REACTIONS (1)
  - CONVULSION [None]
